FAERS Safety Report 24768501 (Version 4)
Quarter: 2025Q1

REPORT INFORMATION
  Report Type: Report from Study
  Country: US (occurrence: US)
  Receive Date: 20241224
  Receipt Date: 20250310
  Transmission Date: 20250408
  Serious: Yes (Other)
  Sender: ABBVIE
  Company Number: US-ABBVIE-6054907

PATIENT
  Age: 65 Year
  Sex: Female
  Weight: 68 kg

DRUGS (3)
  1. SKYRIZI [Suspect]
     Active Substance: RISANKIZUMAB-RZAA
     Indication: Psoriatic arthropathy
     Dosage: FREQUENCY TEXT: WEEK 0?START DATE TEXT: EARLY 2022
     Route: 058
     Dates: start: 2022, end: 2022
  2. SKYRIZI [Suspect]
     Active Substance: RISANKIZUMAB-RZAA
     Indication: Rosacea
     Route: 058
     Dates: start: 20231201
  3. SKYRIZI [Suspect]
     Active Substance: RISANKIZUMAB-RZAA
     Indication: Psoriasis

REACTIONS (5)
  - Benign neoplasm of thyroid gland [Recovering/Resolving]
  - Pharyngeal neoplasm [Unknown]
  - Blood calcium increased [Recovering/Resolving]
  - Hyperparathyroidism [Unknown]
  - Product administered from unauthorised provider [Unknown]

NARRATIVE: CASE EVENT DATE: 20240101
